FAERS Safety Report 6566359-4 (Version None)
Quarter: 2010Q1

REPORT INFORMATION
  Report Type: 
  Country: None (occurrence: None)
  Receive Date: 20100202
  Receipt Date: 20100122
  Transmission Date: 20100710
  Serious: Yes (Disabling, Other)
  Sender: FDA-Public Use
  Company Number: US-ELI_LILLY_AND_COMPANY-US200911005412

PATIENT
  Sex: Female

DRUGS (1)
  1. FORTEO [Suspect]
     Indication: OSTEOPOROSIS
     Dosage: 20 UG, DAILY (1/D)
     Dates: start: 20091118

REACTIONS (5)
  - BLINDNESS [None]
  - DIARRHOEA [None]
  - GAIT DISTURBANCE [None]
  - GASTRITIS [None]
  - VISUAL ACUITY REDUCED [None]
